FAERS Safety Report 16084706 (Version 1)
Quarter: 2019Q1

REPORT INFORMATION
  Report Type: Spontaneous
  Country: CN (occurrence: CN)
  Receive Date: 20190318
  Receipt Date: 20190318
  Transmission Date: 20190418
  Serious: Yes (Hospitalization, Disabling)
  Sender: FDA-Public Use
  Company Number: CN-PFIZER INC-2019109674

PATIENT
  Age: 71 Year
  Sex: Female
  Weight: 65 kg

DRUGS (2)
  1. GLUCOSAMINE HYDROCHLORIDE [Concomitant]
     Active Substance: GLUCOSAMINE HYDROCHLORIDE
     Indication: ARTHRALGIA
     Dosage: 1 DF, 2X/DAY
     Route: 048
     Dates: start: 20190115, end: 20190128
  2. CELECOXIB. [Suspect]
     Active Substance: CELECOXIB
     Indication: ARTHRALGIA
     Dosage: 1 DF, 2X/DAY
     Route: 048
     Dates: start: 20190115, end: 20190128

REACTIONS (3)
  - Drug eruption [Recovering/Resolving]
  - Pruritus [Recovering/Resolving]
  - Macule [Recovering/Resolving]

NARRATIVE: CASE EVENT DATE: 20190128
